FAERS Safety Report 9740770 (Version 2)
Quarter: 2014Q1

REPORT INFORMATION
  Report Type: Spontaneous
  Country: US (occurrence: US)
  Receive Date: 20131209
  Receipt Date: 20140103
  Transmission Date: 20141002
  Serious: Yes (Disabling, Other)
  Sender: FDA-Public Use
  Company Number: US-PFIZER INC-2013349113

PATIENT
  Age: 59 Year
  Sex: Male
  Weight: 113.38 kg

DRUGS (14)
  1. RELPAX [Suspect]
     Indication: MIGRAINE
     Dosage: 20 MG, AS NEEDED
     Route: 048
     Dates: end: 2013
  2. RELPAX [Suspect]
     Indication: HEADACHE
     Dosage: 40 MG, AS NEEDED
     Route: 048
     Dates: start: 2013
  3. RELPAX [Suspect]
     Dosage: 20 MG (BY CUT RELPAX 40MG IN HALF), AS NEEDED
     Route: 048
     Dates: start: 2013
  4. RELPAX [Suspect]
     Dosage: 40 MG, AS NEEDED (1 PO AT HA ONSET, MAY REPEAT 2HRS LATER IF NEEDED)
     Route: 048
  5. METFORMIN [Concomitant]
     Dosage: 2000 MG (4 TABLETS OF 500MG EACH), 1X/DAY
  6. NEURONTIN [Concomitant]
     Dosage: 2400 MG (THREE TABLETS OF 800MG EACH), 1X/DAY
  7. LIPITOR [Concomitant]
     Dosage: 20 MG, 1X/DAY
  8. TESTOSTERONE [Concomitant]
     Dosage: 0.5 ML, WEEKLY
  9. METHADONE [Concomitant]
     Dosage: 40 MG (4 TABLETS OF 10MG EACH), 1X/DAY
  10. INVOKANA [Concomitant]
     Dosage: 100 MG, 1X/DAY
  11. LISINOPRIL [Concomitant]
     Dosage: 10 MG, 1X/DAY
  12. CARVEDILOL [Concomitant]
     Dosage: 25 MG (TWO TABLETS OF 12.5MG EACH), 1X/DAY
  13. POTASSIUM CHLORIDE [Concomitant]
     Dosage: 20 MEQ (TWO PILLS OF 10 MEQ EACH), 1X/DAY
  14. FUROSEMIDE [Concomitant]
     Dosage: 20 MG, 1X/DAY

REACTIONS (5)
  - Atrial fibrillation [Unknown]
  - Migraine [Unknown]
  - Headache [Unknown]
  - Fatigue [Unknown]
  - Drug ineffective [Unknown]
